FAERS Safety Report 9748838 (Version 2)
Quarter: 2013Q4

REPORT INFORMATION
  Report Type: Spontaneous
  Country: US (occurrence: US)
  Receive Date: 20131212
  Receipt Date: 20131212
  Transmission Date: 20140711
  Serious: No
  Sender: FDA-Public Use
  Company Number: US-INCYTE CORPORATION-2013IN000596

PATIENT
  Age: 74 Year
  Sex: Female
  Weight: 72.11 kg

DRUGS (15)
  1. JAKAFI [Suspect]
     Indication: MYELOFIBROSIS
     Dosage: 5 MG, BID
     Route: 048
     Dates: start: 20130312
  2. JAKAFI [Suspect]
     Dosage: 5 MG, QD
     Route: 048
     Dates: start: 20130320, end: 20130501
  3. BUPROPION [Concomitant]
  4. VITAMIN D [Concomitant]
  5. FOLIC ACID [Concomitant]
  6. VITAMIN E [Concomitant]
  7. BACLOFEN [Concomitant]
  8. PATANASE [Concomitant]
  9. DICLOFENAC [Concomitant]
  10. MULTIVITAMIN [Concomitant]
  11. TRAMADOL [Concomitant]
  12. LEVETIRACETAM [Concomitant]
  13. MUCINEX [Concomitant]
  14. LYRICA [Concomitant]
  15. ATARAX [Concomitant]

REACTIONS (5)
  - Depressed mood [Recovered/Resolved]
  - Skin swelling [Recovered/Resolved]
  - Pollakiuria [Recovered/Resolved]
  - Pruritus [Recovered/Resolved]
  - Contusion [Recovered/Resolved]
